FAERS Safety Report 5429351-9 (Version None)
Quarter: 2007Q3

REPORT INFORMATION
  Report Type: 
  Country: None (occurrence: None)
  Receive Date: 20070827
  Receipt Date: 20070813
  Transmission Date: 20080115
  Serious: Yes (Other)
  Sender: FDA-Public Use
  Company Number: 100#08#2007-03033

PATIENT
  Age: 46 Year
  Sex: Male

DRUGS (6)
  1. CARBAMAZEPINE [Suspect]
     Indication: SCHIZOPHRENIA
     Dosage: 600 MG
  2. LITHIUM CARBONATE [Concomitant]
  3. PROMETHAZINE HYDROCHLORIDE (PROMETHAZINE HYDROCHLORIDE) (PROMETHAZINE [Concomitant]
  4. BULOTIZOLAM (BULOTIZOLAM) [Concomitant]
  5. NIMETAZEPAM (NIMETAZEPAM) (NIMETAZEPAM) [Concomitant]
  6. OXAOMIDE (OXATOMIDE) (OXATOMIDE) [Concomitant]

REACTIONS (7)
  - ABNORMAL BEHAVIOUR [None]
  - BLOOD CREATINE PHOSPHOKINASE INCREASED [None]
  - CATATONIA [None]
  - DIABETES INSIPIDUS [None]
  - DRUG WITHDRAWAL SYNDROME [None]
  - MUTISM [None]
  - NERVOUS SYSTEM DISORDER [None]
